FAERS Safety Report 8901302 (Version 1)
Quarter: 2012Q4

REPORT INFORMATION
  Report Type: 
  Country: AU (occurrence: AU)
  Receive Date: 20121108
  Receipt Date: 20121108
  Transmission Date: 20130627
  Serious: Yes (Life-Threatening)
  Sender: FDA-Public Use
  Company Number: AU-BAXTER-2012BAX022040

PATIENT
  Age: 84 Year
  Sex: Male
  Weight: 67 kg

DRUGS (2)
  1. BAXTER 0.9% SODIUM CHLORIDE 450MG_50ML INJECTION BP BAG AHB1306_AHB136 [Suspect]
     Indication: MEDICATION DILUTION
     Route: 042
     Dates: start: 20120919, end: 20120919
  2. IRON POLYMALTOSE [Suspect]
     Indication: IRON DEFICIENCY
     Route: 042
     Dates: start: 20120919, end: 20120919

REACTIONS (2)
  - Chest pain [Recovered/Resolved]
  - Chest discomfort [Recovered/Resolved]
